FAERS Safety Report 24927336 (Version 1)
Quarter: 2025Q1

REPORT INFORMATION
  Report Type: Spontaneous
  Country: NO (occurrence: NO)
  Receive Date: 20250205
  Receipt Date: 20250205
  Transmission Date: 20250408
  Serious: Yes (Death, Life-Threatening, Other)
  Sender: MACLEODS
  Company Number: NO-MLMSERVICE-20250116-PI360737-00076-1

PATIENT

DRUGS (5)
  1. CANDESARTAN [Suspect]
     Active Substance: CANDESARTAN
     Indication: Product used for unknown indication
     Route: 064
  2. PRAMIPEXOLE [Suspect]
     Active Substance: PRAMIPEXOLE
     Indication: Product used for unknown indication
     Dosage: 0.18 MG 3X
     Route: 064
  3. ZOLMITRIPTAN [Suspect]
     Active Substance: ZOLMITRIPTAN
     Indication: Product used for unknown indication
     Route: 064
  4. AMITRIPTYLINE [Suspect]
     Active Substance: AMITRIPTYLINE
     Indication: Product used for unknown indication
     Route: 064
  5. METOCLOPRAMIDE [Suspect]
     Active Substance: METOCLOPRAMIDE
     Indication: Product used for unknown indication
     Route: 064

REACTIONS (7)
  - Foetal growth abnormality [Fatal]
  - Renal aplasia [Fatal]
  - Microcephaly [Fatal]
  - Pulmonary hypoplasia [Fatal]
  - Neonatal respiratory distress syndrome [Fatal]
  - Delayed foetal renal development [Fatal]
  - Foetal exposure during pregnancy [Unknown]
